FAERS Safety Report 25531178 (Version 2)
Quarter: 2025Q3

REPORT INFORMATION
  Report Type: Spontaneous
  Country: GB (occurrence: GB)
  Receive Date: 20250708
  Receipt Date: 20250731
  Transmission Date: 20251020
  Serious: No
  Sender: NOVARTIS
  Company Number: GB-IPSEN Group, Research and Development-2024-02543

PATIENT
  Age: 62 Year
  Sex: Male
  Weight: 92 kg

DRUGS (4)
  1. IMATINIB [Suspect]
     Active Substance: IMATINIB
     Indication: Product used for unknown indication
     Route: 065
  2. SUNITINIB [Suspect]
     Active Substance: SUNITINIB
     Indication: Product used for unknown indication
     Route: 065
  3. CABOMETYX [Suspect]
     Active Substance: CABOZANTINIB S-MALATE
     Indication: Gastrointestinal stromal tumour
     Dosage: 60 MG, QD (DAILY)
     Route: 048
     Dates: start: 20231212, end: 20240116
  4. CABOMETYX [Suspect]
     Active Substance: CABOZANTINIB S-MALATE
     Indication: Off label use
     Dosage: 40 MG, QD (DAILY)
     Route: 048
     Dates: start: 20240206

REACTIONS (4)
  - Blister [Recovered/Resolved]
  - Product distribution issue [Unknown]
  - Product dose omission issue [Unknown]
  - Off label use [Unknown]

NARRATIVE: CASE EVENT DATE: 20231212
